FAERS Safety Report 25250634 (Version 1)
Quarter: 2025Q2

REPORT INFORMATION
  Report Type: Spontaneous
  Country: CN (occurrence: CN)
  Receive Date: 20250429
  Receipt Date: 20250429
  Transmission Date: 20250716
  Serious: Yes (Hospitalization, Other)
  Sender: BAYER HEALTHCARE PHARMACEUTICALS INC.
  Company Number: CN-BAYER-2025A054066

PATIENT
  Age: 77 Year
  Sex: Female
  Weight: 39 kg

DRUGS (2)
  1. STIVARGA [Suspect]
     Active Substance: REGORAFENIB MONOHYDRATE
     Indication: Rectal cancer
     Dosage: 80 MG, QD
     Route: 048
     Dates: start: 20250315, end: 20250329
  2. STIVARGA [Suspect]
     Active Substance: REGORAFENIB MONOHYDRATE
     Indication: Rectal cancer
     Dosage: 120 MG, QD
     Route: 048
     Dates: start: 20250330, end: 20250405

REACTIONS (8)
  - Colon cancer recurrent [None]
  - Colon cancer metastatic [None]
  - Dermatitis bullous [Recovering/Resolving]
  - Skin exfoliation [Recovering/Resolving]
  - Pain of skin [Recovering/Resolving]
  - Blister [Recovering/Resolving]
  - Product prescribing issue [None]
  - Incorrect dose administered [None]

NARRATIVE: CASE EVENT DATE: 20250315
